FAERS Safety Report 4673306-9 (Version None)
Quarter: 2005Q2

REPORT INFORMATION
  Report Type: 
  Country: None (occurrence: None)
  Receive Date: 20050525
  Receipt Date: 20050509
  Transmission Date: 20051028
  Serious: Yes (Death, Hospitalization)
  Sender: FDA-Public Use
  Company Number: HQWYE598609MAY05

PATIENT
  Age: 24 Year
  Sex: Female

DRUGS (3)
  1. ENBREL [Suspect]
     Indication: RHEUMATOID ARTHRITIS
     Dosage: ONE DOSE OF 25 MG
     Route: 058
  2. PREDNISONE [Suspect]
     Indication: RHEUMATOID ARTHRITIS
  3. METHOTREXATE [Concomitant]
     Indication: RHEUMATOID ARTHRITIS

REACTIONS (4)
  - CARDIAC ARREST [None]
  - FALL [None]
  - INJURY [None]
  - TOXIC SHOCK SYNDROME STREPTOCOCCAL [None]
